FAERS Safety Report 9475443 (Version 2)
Quarter: 2013Q3

REPORT INFORMATION
  Report Type: Spontaneous
  Country: US (occurrence: US)
  Receive Date: 20130826
  Receipt Date: 20130910
  Transmission Date: 20140515
  Serious: Yes (Hospitalization)
  Sender: FDA-Public Use
  Company Number: US-BIOGENIDEC-2013BI080538

PATIENT
  Sex: Female

DRUGS (2)
  1. TECFIDERA [Suspect]
     Indication: PRODUCT USED FOR UNKNOWN INDICATION
     Dates: start: 20130516, end: 20130626
  2. AVONEX [Concomitant]
     Indication: MULTIPLE SCLEROSIS
     Route: 030

REACTIONS (14)
  - Hernia [Unknown]
  - Hepatic enzyme increased [Unknown]
  - Memory impairment [Unknown]
  - Hepatitis A [Unknown]
  - Choking [Unknown]
  - Oesophagitis [Unknown]
  - Flushing [Unknown]
  - Hypersomnia [Unknown]
  - Adverse drug reaction [Unknown]
  - Nausea [Unknown]
  - Walking aid user [Unknown]
  - Fall [Unknown]
  - Head injury [Unknown]
  - Fear [Unknown]
